FAERS Safety Report 6530881-7 (Version None)
Quarter: 2010Q1

REPORT INFORMATION
  Report Type: 
  Country: None (occurrence: None)
  Receive Date: 20100108
  Receipt Date: 20090512
  Transmission Date: 20100710
  Serious: No
  Sender: FDA-Public Use
  Company Number: A0782568A

PATIENT
  Age: 82 Year
  Sex: Female
  Weight: 72.3 kg

DRUGS (5)
  1. LOVAZA [Suspect]
     Dosage: 4G PER DAY
     Route: 048
  2. BENICAR HCT [Concomitant]
     Indication: HYPERTENSIVE HEART DISEASE
     Route: 048
  3. DILTIAZEM [Concomitant]
     Indication: HYPERTENSIVE HEART DISEASE
     Dosage: 240MG UNKNOWN
     Route: 048
  4. PLAVIX [Concomitant]
     Dosage: 75MG UNKNOWN
     Route: 048
  5. TRICOR [Concomitant]
     Dosage: 145MG UNKNOWN
     Route: 048

REACTIONS (1)
  - DIARRHOEA [None]
